FAERS Safety Report 4681366-4 (Version None)
Quarter: 2005Q2

REPORT INFORMATION
  Report Type: 
  Country: None (occurrence: None)
  Receive Date: 20050601
  Receipt Date: 20050419
  Transmission Date: 20051028
  Serious: Yes (Death)
  Sender: FDA-Public Use
  Company Number: 142209USA

PATIENT
  Sex: Male

DRUGS (2)
  1. FLUOXETINE [Suspect]
  2. LEXAPRO [Suspect]

REACTIONS (1)
  - COMPLETED SUICIDE [None]
